FAERS Safety Report 19497889 (Version 1)
Quarter: 2021Q3

REPORT INFORMATION
  Report Type: Other
  Country: US (occurrence: US)
  Receive Date: 20210706
  Receipt Date: 20210706
  Transmission Date: 20211014
  Serious: No
  Sender: FDA-Public Use
  Company Number: US-RC OUTSOURCING, LLC-2113486

PATIENT
  Age: 61 Year
  Sex: Female

DRUGS (1)
  1. BEVACIZUMAB 2.5 MG/0.1 ML [Suspect]
     Active Substance: BEVACIZUMAB
     Route: 031

REACTIONS (1)
  - Endophthalmitis [None]

NARRATIVE: CASE EVENT DATE: 20210628
